FAERS Safety Report 13742391 (Version 1)
Quarter: 2017Q3

REPORT INFORMATION
  Report Type: Spontaneous
  Country: AR (occurrence: AR)
  Receive Date: 20170711
  Receipt Date: 20170711
  Transmission Date: 20171127
  Serious: Yes (Other)
  Sender: FDA-Public Use
  Company Number: AR-AMGEN-ARGSP2017103113

PATIENT
  Age: 73 Year
  Sex: Female

DRUGS (1)
  1. ENBREL [Suspect]
     Active Substance: ETANERCEPT
     Indication: RHEUMATOID ARTHRITIS
     Dosage: 50 MG, WEEKLY
     Route: 065
     Dates: start: 20101018

REACTIONS (8)
  - Bone deformity [Unknown]
  - Foot deformity [Unknown]
  - Finger deformity [Unknown]
  - Pyrexia [Recovering/Resolving]
  - Bronchitis [Recovering/Resolving]
  - Traumatic lung injury [Recovering/Resolving]
  - Pneumonia [Recovering/Resolving]
  - Tendon rupture [Unknown]

NARRATIVE: CASE EVENT DATE: 201608
